FAERS Safety Report 21211674 (Version 1)
Quarter: 2022Q3

REPORT INFORMATION
  Report Type: Spontaneous
  Country: US (occurrence: None)
  Receive Date: 20220812
  Receipt Date: 20220812
  Transmission Date: 20221027
  Serious: No
  Sender: FDA-Public Use
  Company Number: None

PATIENT
  Age: 62 Year
  Sex: Male
  Weight: 128 kg

DRUGS (1)
  1. BEBTELOVIMAB [Suspect]
     Active Substance: BEBTELOVIMAB
     Indication: COVID-19 treatment
     Dosage: 175 MG ONCE IV?
     Route: 042
     Dates: start: 20220713, end: 20220713

REACTIONS (1)
  - Rash [None]

NARRATIVE: CASE EVENT DATE: 20220716
